FAERS Safety Report 8214121-9 (Version None)
Quarter: 2012Q1

REPORT INFORMATION
  Report Type: 
  Country: None (occurrence: None)
  Receive Date: 20120316
  Receipt Date: 20120306
  Transmission Date: 20120608
  Serious: Yes (Other)
  Sender: FDA-Public Use
  Company Number: US-JNJFOC-20120303303

PATIENT
  Sex: Male

DRUGS (6)
  1. REMICADE [Suspect]
     Indication: CROHN'S DISEASE
     Route: 042
     Dates: start: 20120305
  2. APAP TAB [Concomitant]
     Indication: PREMEDICATION
     Route: 065
  3. MERCAPTOPURINE [Concomitant]
     Indication: CROHN'S DISEASE
     Route: 065
  4. BENADRYL [Concomitant]
     Indication: PREMEDICATION
     Route: 065
  5. ANTIBIOTICS [Concomitant]
     Indication: FISTULA
     Route: 065
  6. REMICADE [Suspect]
     Route: 042
     Dates: start: 20120101

REACTIONS (4)
  - INFUSION RELATED REACTION [None]
  - CHILLS [None]
  - FLUSHING [None]
  - COUGH [None]
